FAERS Safety Report 20420347 (Version 1)
Quarter: 2022Q1

REPORT INFORMATION
  Report Type: Report from Study
  Country: NL (occurrence: NL)
  Receive Date: 20220203
  Receipt Date: 20220203
  Transmission Date: 20220423
  Serious: Yes (Hospitalization)
  Sender: FDA-Public Use
  Company Number: NL-KOREA IPSEN Pharma-2022-01922

PATIENT
  Age: 80 Year
  Sex: Female

DRUGS (1)
  1. LANREOTIDE ACETATE [Suspect]
     Active Substance: LANREOTIDE ACETATE
     Indication: Small intestine neuroendocrine tumour
     Dosage: 1.00 X PER 4 WEEKS
     Route: 058
     Dates: start: 20211230

REACTIONS (3)
  - Cystitis [Unknown]
  - Dehydration [Unknown]
  - Unresponsive to stimuli [Unknown]

NARRATIVE: CASE EVENT DATE: 20220124
